FAERS Safety Report 23452480 (Version 3)
Quarter: 2024Q1

REPORT INFORMATION
  Report Type: Spontaneous
  Country: US (occurrence: US)
  Receive Date: 20240129
  Receipt Date: 20240311
  Transmission Date: 20240410
  Serious: No
  Sender: FDA-Public Use
  Company Number: US-PFIZER INC-PV202400012092

PATIENT
  Age: 74 Year
  Sex: Female
  Weight: 78.912 kg

DRUGS (3)
  1. ESTROGENS, CONJUGATED [Suspect]
     Active Substance: ESTROGENS, CONJUGATED
     Dosage: UNK
  2. LISINOPRIL [Concomitant]
     Active Substance: LISINOPRIL
     Indication: Blood pressure measurement
     Dosage: UNK
  3. LIPOSTATINE [Concomitant]
     Indication: Blood cholesterol
     Dosage: UNK

REACTIONS (1)
  - Therapeutic product effect incomplete [Unknown]
